FAERS Safety Report 5927732-8 (Version None)
Quarter: 2008Q4

REPORT INFORMATION
  Report Type: 
  Country: None (occurrence: None)
  Receive Date: 20081023
  Receipt Date: 20081014
  Transmission Date: 20090506
  Serious: Yes (Other)
  Sender: FDA-Public Use
  Company Number: JP-BRISTOL-MYERS SQUIBB COMPANY-14376867

PATIENT
  Age: 69 Year
  Sex: Male

DRUGS (6)
  1. ABILIFY [Suspect]
     Indication: SCHIZOPHRENIA
     Dosage: 6MG TAB
     Route: 048
     Dates: end: 20081006
  2. CONTOMIN [Suspect]
     Indication: PSYCHIATRIC SYMPTOM
     Route: 048
     Dates: start: 20080903, end: 20081006
  3. CONTOMIN [Suspect]
     Indication: ASOCIAL BEHAVIOUR
     Route: 048
     Dates: start: 20080903, end: 20081006
  4. BARNETIL [Suspect]
     Route: 048
     Dates: end: 20081006
  5. MAGLAX [Concomitant]
     Dosage: FORM: TABLET
  6. AKINETON [Concomitant]

REACTIONS (1)
  - ILEUS [None]
